FAERS Safety Report 7619204-X (Version None)
Quarter: 2011Q3

REPORT INFORMATION
  Report Type: 
  Country: None (occurrence: None)
  Receive Date: 20110718
  Receipt Date: 20110708
  Transmission Date: 20111222
  Serious: Yes (Other)
  Sender: FDA-Public Use
  Company Number: PHHY2011GR61312

PATIENT
  Age: 70 Year
  Sex: Female

DRUGS (2)
  1. SANDIMMUNE [Suspect]
     Indication: PSORIASIS
     Dosage: 150 MG
  2. PLAVIX [Concomitant]

REACTIONS (1)
  - VASCULITIS [None]
